FAERS Safety Report 5284918-6 (Version None)
Quarter: 2007Q1

REPORT INFORMATION
  Report Type: 
  Country: None (occurrence: None)
  Receive Date: 20061229
  Receipt Date: 20060913
  Transmission Date: 20070707
  Serious: Yes (Hospitalization)
  Sender: FDA-Public Use
  Company Number: PHEH2006US11720

PATIENT
  Age: 46 Year
  Sex: Female

DRUGS (3)
  1. CLOZARIL [Suspect]
     Indication: PSYCHOTIC DISORDER
     Dosage: 50 MG, BID, ORAL
     Route: 048
     Dates: start: 20060701, end: 20060701
  2. CLOZARIL [Suspect]
     Indication: PSYCHOTIC DISORDER
     Dosage: 50 MG, BID, ORAL
     Route: 048
     Dates: start: 20060801
  3. NAVANE [Suspect]

REACTIONS (4)
  - DEPRESSION [None]
  - DYSKINESIA [None]
  - PLATELET COUNT INCREASED [None]
  - WHITE BLOOD CELL COUNT DECREASED [None]
